FAERS Safety Report 7136533-7 (Version None)
Quarter: 2010Q4

REPORT INFORMATION
  Report Type: 
  Country: None (occurrence: None)
  Receive Date: 20101206
  Receipt Date: 20080123
  Transmission Date: 20110411
  Serious: Yes (Death)
  Sender: FDA-Public Use
  Company Number: TH-ACTELION-A-CH2008-19272

PATIENT
  Age: 64 Year
  Sex: Female
  Weight: 40 kg

DRUGS (4)
  1. TRACLEER [Suspect]
     Indication: PULMONARY HYPERTENSION
     Dosage: 62.5 MG, BID
     Route: 048
     Dates: start: 20070326
  2. PREDNISOLONE [Concomitant]
  3. ENDOXAN [Concomitant]
  4. OXYGEN [Concomitant]

REACTIONS (3)
  - ASTHENIA [None]
  - DEATH [None]
  - UNDERWEIGHT [None]
